FAERS Safety Report 7570891-4 (Version None)
Quarter: 2011Q2

REPORT INFORMATION
  Report Type: 
  Country: None (occurrence: None)
  Receive Date: 20110620
  Receipt Date: 20110612
  Transmission Date: 20111010
  Serious: Yes (Other)
  Sender: FDA-Public Use
  Company Number: DKLU1071264

PATIENT
  Age: 46 Year
  Sex: Female

DRUGS (6)
  1. PROGESTERONE [Concomitant]
  2. LAMICTAL [Concomitant]
  3. VAGAL NERVE STIMULATOR (ANTIEPILEPTICS) [Concomitant]
  4. OXCARBAZEPINE [Concomitant]
  5. CLORAZEPATE DIPOTASSIUM [Concomitant]
  6. SABRIL [Suspect]
     Indication: EPILEPSY
     Dosage: 500 MG, MILLIGRAM(S), 2 IN 1 D, ORAL
     Route: 048
     Dates: start: 20110511, end: 20110603

REACTIONS (1)
  - ANAPHYLACTOID REACTION [None]
